FAERS Safety Report 4677680-9 (Version None)
Quarter: 2005Q2

REPORT INFORMATION
  Report Type: 
  Country: None (occurrence: None)
  Receive Date: 20050531
  Receipt Date: 20050519
  Transmission Date: 20051028
  Serious: Yes (Hospitalization)
  Sender: FDA-Public Use
  Company Number: DE-BRISTOL-MYERS SQUIBB COMPANY-12980751

PATIENT
  Age: 56 Year
  Sex: Female

DRUGS (10)
  1. IFOSFAMIDE [Suspect]
     Indication: NON-HODGKIN'S LYMPHOMA
     Route: 042
     Dates: start: 20040401, end: 20040401
  2. ETOPOSIDE [Suspect]
     Indication: NON-HODGKIN'S LYMPHOMA
     Dates: start: 20040601, end: 20040601
  3. CARBOPLATIN [Suspect]
     Indication: NON-HODGKIN'S LYMPHOMA
     Dates: start: 20040401, end: 20040401
  4. MESNA [Suspect]
     Indication: PROPHYLAXIS
     Dates: start: 20040401, end: 20040401
  5. CARMUSTINE [Suspect]
     Indication: NON-HODGKIN'S LYMPHOMA
     Dates: start: 20040601, end: 20040601
  6. MABTHERA [Suspect]
     Indication: NON-HODGKIN'S LYMPHOMA
     Dates: start: 20050504, end: 20050504
  7. CYTARABINE [Suspect]
     Indication: NON-HODGKIN'S LYMPHOMA
     Dates: start: 20040601, end: 20040601
  8. MELPHALAN [Suspect]
     Indication: NON-HODGKIN'S LYMPHOMA
     Dates: start: 20040601, end: 20040601
  9. L-THYROXINE [Concomitant]
  10. NEUPOGEN [Concomitant]

REACTIONS (2)
  - HERPES ZOSTER [None]
  - STEM CELL TRANSPLANT [None]
